FAERS Safety Report 9180976 (Version 1)
Quarter: 2013Q1

REPORT INFORMATION
  Report Type: Spontaneous
  Country: CA (occurrence: None)
  Receive Date: 20130320
  Receipt Date: 20130320
  Transmission Date: 20140127
  Serious: Yes (Congenital Anomaly)
  Sender: FDA-Public Use
  Company Number: PRED20130008

PATIENT
  Age: 10 Month
  Sex: Female

DRUGS (1)
  1. PREDNISONE [Suspect]
     Indication: MATERNAL DRUGS AFFECTING FOETUS
     Route: 064

REACTIONS (4)
  - Palatal disorder [None]
  - Regurgitation [None]
  - Sleep apnoea syndrome [None]
  - Maternal drugs affecting foetus [None]
